FAERS Safety Report 7464698-6 (Version None)
Quarter: 2011Q2

REPORT INFORMATION
  Report Type: 
  Country: None (occurrence: None)
  Receive Date: 20110509
  Receipt Date: 20110225
  Transmission Date: 20111010
  Serious: Yes (Hospitalization, Other)
  Sender: FDA-Public Use
  Company Number: US-BAYER-201035520NA

PATIENT
  Age: 35 Year
  Sex: Female
  Weight: 95 kg

DRUGS (5)
  1. YASMIN [Suspect]
     Indication: CONTRACEPTION
     Route: 048
     Dates: start: 20031001, end: 20050601
  2. YASMIN [Suspect]
     Indication: PREMENSTRUAL SYNDROME
  3. ADVAIR DISKUS 100/50 [Concomitant]
     Route: 048
  4. MOBIC [Concomitant]
     Route: 048
  5. SINGULAIR [Concomitant]
     Dosage: 7.5 MG, UNK
     Route: 048

REACTIONS (3)
  - CHOLECYSTITIS [None]
  - DEEP VEIN THROMBOSIS [None]
  - GALLBLADDER DISORDER [None]
